FAERS Safety Report 6064608-2 (Version None)
Quarter: 2009Q1

REPORT INFORMATION
  Report Type: 
  Country: None (occurrence: None)
  Receive Date: 20090204
  Receipt Date: 20090127
  Transmission Date: 20090719
  Serious: Yes (Life-Threatening, Hospitalization, Other)
  Sender: FDA-Public Use
  Company Number: B0557295A

PATIENT
  Age: 55 Year
  Sex: Female

DRUGS (1)
  1. SUPACEF [Suspect]
     Indication: PROPHYLAXIS
     Route: 065

REACTIONS (2)
  - ANAPHYLACTIC SHOCK [None]
  - PRODUCT QUALITY ISSUE [None]
